FAERS Safety Report 14448109 (Version 1)
Quarter: 2018Q1

REPORT INFORMATION
  Report Type: Spontaneous
  Country: MX (occurrence: MX)
  Receive Date: 20180126
  Receipt Date: 20180126
  Transmission Date: 20180509
  Serious: Yes (Life-Threatening, Hospitalization, Other)
  Sender: FDA-Public Use
  Company Number: MX-ELI_LILLY_AND_COMPANY-MX201801009106

PATIENT
  Age: 51 Year
  Sex: Male
  Weight: 78 kg

DRUGS (2)
  1. PACLITAXEL. [Concomitant]
     Active Substance: PACLITAXEL
     Indication: GASTROOESOPHAGEAL CANCER
     Dosage: UNK, CYCLICAL
     Route: 042
     Dates: start: 20170921
  2. CYRAMZA [Suspect]
     Active Substance: RAMUCIRUMAB
     Indication: GASTROOESOPHAGEAL CANCER
     Dosage: 8 MG/KG, CYCLICAL
     Route: 042
     Dates: start: 20170921

REACTIONS (8)
  - Oral candidiasis [Recovered/Resolved]
  - Immunosuppression [Recovered/Resolved]
  - Pneumonia [Recovered/Resolved]
  - Eating disorder [Recovered/Resolved]
  - Acute respiratory failure [Recovered/Resolved]
  - Dehydration [Recovered/Resolved]
  - Mucosal inflammation [Recovered/Resolved]
  - Malnutrition [Recovered/Resolved]

NARRATIVE: CASE EVENT DATE: 201712
